FAERS Safety Report 19624271 (Version 2)
Quarter: 2021Q3

REPORT INFORMATION
  Report Type: Spontaneous
  Country: US (occurrence: US)
  Receive Date: 20210729
  Receipt Date: 20210730
  Transmission Date: 20211014
  Serious: No
  Sender: FDA-Public Use
  Company Number: US-009507513-2107USA002647

PATIENT
  Sex: Male

DRUGS (2)
  1. KEYTRUDA [Suspect]
     Active Substance: PEMBROLIZUMAB
     Indication: LIPOSARCOMA
     Dosage: EVERY 2 WEEKS AND THEN ON A MONTHLY BASIS
     Route: 042
     Dates: start: 202005
  2. ERIBULIN [Suspect]
     Active Substance: ERIBULIN
     Indication: LIPOSARCOMA
     Dosage: UNK
     Dates: start: 202005, end: 202011

REACTIONS (8)
  - Arthralgia [Recovered/Resolved]
  - Inappropriate schedule of product administration [Unknown]
  - Bone pain [Recovered/Resolved]
  - Product use in unapproved indication [Unknown]
  - Dizziness [Recovered/Resolved]
  - Hyperphagia [Recovered/Resolved]
  - Pruritus [Recovered/Resolved]
  - Drug effective for unapproved indication [Unknown]

NARRATIVE: CASE EVENT DATE: 2020
